FAERS Safety Report 7959490-X (Version None)
Quarter: 2011Q4

REPORT INFORMATION
  Report Type: 
  Country: None (occurrence: None)
  Receive Date: 20111206
  Receipt Date: 20111130
  Transmission Date: 20120403
  Serious: No
  Sender: FDA-Public Use
  Company Number: US-PFIZER INC-2011293357

PATIENT

DRUGS (1)
  1. PREMPRO [Suspect]
     Dosage: 0.625/2.5 MG/UNK

REACTIONS (5)
  - EXPIRED DRUG ADMINISTERED [None]
  - SLUGGISHNESS [None]
  - ENERGY INCREASED [None]
  - LIMB INJURY [None]
  - WEIGHT INCREASED [None]
